FAERS Safety Report 10361018 (Version 2)
Quarter: 2014Q3

REPORT INFORMATION
  Report Type: Spontaneous
  Country: US (occurrence: US)
  Receive Date: 20140804
  Receipt Date: 20140804
  Transmission Date: 20150326
  Serious: Yes (Hospitalization, Other)
  Sender: FDA-Public Use
  Company Number: US-009507513-2008-182094-NL

PATIENT
  Sex: Female
  Weight: 63.5 kg

DRUGS (3)
  1. LEVAQUIN [Concomitant]
     Active Substance: LEVOFLOXACIN
     Indication: STAPHYLOCOCCAL INFECTION
  2. NUVARING [Suspect]
     Active Substance: ETHINYL ESTRADIOL\ETONOGESTREL
     Indication: CONTRACEPTION
     Dosage: CONTINUING: NO
     Route: 067
     Dates: start: 2003, end: 200605
  3. ACETAMINOPHEN (+) HYDROCODONE BITARTRATE [Concomitant]
     Active Substance: ACETAMINOPHEN\HYDROCODONE
     Indication: PAIN

REACTIONS (3)
  - Staphylococcal infection [Recovered/Resolved]
  - Pulmonary embolism [Unknown]
  - Traumatic fracture [Recovered/Resolved]

NARRATIVE: CASE EVENT DATE: 20060513
